FAERS Safety Report 9316187 (Version 1)
Quarter: 2013Q2

REPORT INFORMATION
  Report Type: Spontaneous
  Country: US (occurrence: None)
  Receive Date: 20130528
  Receipt Date: 20130528
  Transmission Date: 20140414
  Serious: No
  Sender: FDA-Public Use
  Company Number: None

PATIENT
  Age: 52 Year
  Sex: Male
  Weight: 113.6 kg

DRUGS (2)
  1. MYFORTIC [Suspect]
     Dosage: 720 MGS BID ROUTE 047
     Dates: start: 201203
  2. RAPAMUNE [Suspect]
     Dosage: 3 MGS QD ROUTE 047
     Dates: start: 20130517

REACTIONS (1)
  - Pyrexia [None]
